FAERS Safety Report 7834548-4 (Version None)
Quarter: 2011Q4

REPORT INFORMATION
  Report Type: 
  Country: None (occurrence: None)
  Receive Date: 20111024
  Receipt Date: 20110719
  Transmission Date: 20120403
  Serious: No
  Sender: FDA-Public Use
  Company Number: US-BAUSCH-2011BL004920

PATIENT
  Age: 49 Year
  Sex: Female

DRUGS (1)
  1. TOBRAMYCIN AND DEXAMETHASONE [Suspect]
     Indication: DACRYOSTENOSIS ACQUIRED
     Route: 047
     Dates: start: 20110715, end: 20110718

REACTIONS (4)
  - LACRIMAL DISORDER [None]
  - DIZZINESS [None]
  - DYSGEUSIA [None]
  - VOMITING [None]
